FAERS Safety Report 5974390-2 (Version None)
Quarter: 2008Q4

REPORT INFORMATION
  Report Type: 
  Country: None (occurrence: None)
  Receive Date: 20081128
  Receipt Date: 20081122
  Transmission Date: 20090506
  Serious: Yes (Other)
  Sender: FDA-Public Use
  Company Number: 2007SP018059

PATIENT
  Age: 42 Year
  Sex: Female
  Weight: 75.2971 kg

DRUGS (5)
  1. PEG-INTRON [Suspect]
     Indication: HEPATITIS C
     Dosage: ; SC
     Route: 058
     Dates: start: 20061201
  2. PEG-INTRON [Suspect]
     Indication: HEPATITIS C
     Dosage: ; SC
     Route: 058
     Dates: start: 20080804
  3. REBETOL [Suspect]
     Indication: HEPATITIS C
     Dosage: ; PO
     Route: 048
     Dates: start: 20061201
  4. REBETOL [Suspect]
     Indication: HEPATITIS C
     Dosage: ; PO
     Route: 048
     Dates: start: 20080804
  5. METOPROLOL TARTRATE [Concomitant]

REACTIONS (27)
  - ABDOMINAL PAIN UPPER [None]
  - ALOPECIA [None]
  - ASTHENIA [None]
  - CONTUSION [None]
  - CRYING [None]
  - DENTAL CARIES [None]
  - DEPRESSION [None]
  - DRY MOUTH [None]
  - FALL [None]
  - HAEMATEMESIS [None]
  - HAIR COLOUR CHANGES [None]
  - HOMICIDAL IDEATION [None]
  - ILL-DEFINED DISORDER [None]
  - INFLUENZA LIKE ILLNESS [None]
  - JOINT SPRAIN [None]
  - LOSS OF CONSCIOUSNESS [None]
  - NAUSEA [None]
  - PHARYNGITIS [None]
  - PRURITUS [None]
  - RASH [None]
  - SUICIDAL IDEATION [None]
  - SUICIDE ATTEMPT [None]
  - TOOTH EXTRACTION [None]
  - TOOTH INFECTION [None]
  - ULCER [None]
  - VOMITING [None]
  - WEIGHT FLUCTUATION [None]
